FAERS Safety Report 4417752-7 (Version None)
Quarter: 2004Q2

REPORT INFORMATION
  Report Type: 
  Country: None (occurrence: None)
  Receive Date: 20040621
  Receipt Date: 20040329
  Transmission Date: 20050107
  Serious: Yes (Other)
  Sender: FDA-Public Use
  Company Number: PHEH2004US03588

PATIENT
  Age: 54 Year
  Sex: Female

DRUGS (7)
  1. ZOMETA [Suspect]
     Indication: BREAST CANCER
     Dosage: 4 MG ONE TIME PER MONTH, INTRAVENOUS
     Route: 042
     Dates: start: 20010101, end: 20030101
  2. OXYCONTIN [Concomitant]
  3. DEPAKOTE [Concomitant]
  4. CELEXA [Concomitant]
  5. CLONAZEPAM [Concomitant]
  6. TAXOL [Concomitant]
  7. ADRIAMYCIN PFS [Concomitant]

REACTIONS (4)
  - ASEPTIC NECROSIS BONE [None]
  - BONE DISORDER [None]
  - INFECTION [None]
  - PAIN [None]
